FAERS Safety Report 9656084 (Version 2)
Quarter: 2013Q4

REPORT INFORMATION
  Report Type: Report from Study
  Country: CA (occurrence: CA)
  Receive Date: 20131030
  Receipt Date: 20131030
  Transmission Date: 20140711
  Serious: Yes (Death, Other)
  Sender: FDA-Public Use
  Company Number: PHHY2013CA098876

PATIENT
  Age: 87 Year
  Sex: Female

DRUGS (2)
  1. SANDOSTATIN [Suspect]
     Indication: PANCREATIC NEOPLASM
     Dosage: 100 UG, BID
     Route: 058
     Dates: start: 20130831
  2. SANDOSTATIN LAR [Suspect]
     Indication: PANCREATIC NEOPLASM
     Dosage: 20 MG, EVERY 4 WEEKS
     Route: 030
     Dates: start: 20130909

REACTIONS (3)
  - Death [Fatal]
  - Blood glucose increased [Unknown]
  - Malaise [Unknown]
